FAERS Safety Report 9172574 (Version 1)
Quarter: 2012Q4

REPORT INFORMATION
  Report Type: 
  Country: DE (occurrence: DE)
  Receive Date: 20120911
  Receipt Date: 20120911
  Transmission Date: 20130627
  Serious: Yes (Death, Other)
  Sender: FDA-Public Use
  Company Number: PHHY2012DE077529

PATIENT
  Age: 64 Year
  Sex: Female

DRUGS (2)
  1. CICLOSPORIN [Suspect]
     Indication: GRAFT VERSUS HOST DISEASE
     Dosage: UNK
     Dates: end: 200711
  2. PREDNISOLONE [Suspect]
     Indication: GRAFT VERSUS HOST DISEASE
     Dosage: UNK
     Dates: end: 200805

REACTIONS (10)
  - Death [Fatal]
  - Vulval cancer [Unknown]
  - Leukaemia recurrent [Unknown]
  - Hydrocephalus [Unknown]
  - Psychomotor skills impaired [Unknown]
  - Disorientation [Unknown]
  - Mutism [Unknown]
  - Inappropriate affect [Unknown]
  - Intracranial pressure increased [Unknown]
  - Cognitive disorder [Unknown]
